FAERS Safety Report 4331460-2 (Version None)
Quarter: 2004Q1

REPORT INFORMATION
  Report Type: 
  Country: None (occurrence: None)
  Receive Date: 20040329
  Receipt Date: 20040316
  Transmission Date: 20041129
  Serious: Yes (Other)
  Sender: FDA-Public Use
  Company Number: 2004-03-0168

PATIENT
  Age: 66 Year
  Sex: Female

DRUGS (9)
  1. ALBUTEROL SULFATE AUTOHALER [Suspect]
     Indication: ASTHMA
     Dosage: 3.0 MG 4 X INHALATION
     Route: 055
  2. IPRATROPIUM BROMIDE [Suspect]
     Indication: ASTHMA
     Dosage: 72 MCG X4 INHALATION
  3. METHYLPREDNISOLONE SODIUM SUCCINATE INJECTABLE [Suspect]
     Indication: ASTHMA
     Dosage: 125 MG INTRAVENOUS
     Route: 042
  4. THEOPHYLLINE [Concomitant]
  5. CONJUGATED ESTROGEN [Concomitant]
  6. BECLOMETHASONE NASAL SPRAY [Concomitant]
  7. TRIAMCINOLONE ACETONIDE [Concomitant]
  8. ALBUTEROL SULFATE [Concomitant]
  9. DECONGESTANT (NOS) [Concomitant]

REACTIONS (5)
  - ANGLE CLOSURE GLAUCOMA [None]
  - ANXIETY [None]
  - BLOOD PRESSURE INCREASED [None]
  - HEADACHE [None]
  - NAUSEA [None]
